FAERS Safety Report 9278991 (Version 2)
Quarter: 2014Q2

REPORT INFORMATION
  Report Type: Report from Study
  Country: RU (occurrence: RU)
  Receive Date: 20130508
  Receipt Date: 20140410
  Transmission Date: 20141212
  Serious: Yes (Other)
  Sender: FDA-Public Use
  Company Number: RU-GLAXOSMITHKLINE-B0889086A

PATIENT
  Age: 27 Year
  Sex: Male

DRUGS (1)
  1. RETIGABINE [Suspect]
     Indication: PARTIAL SEIZURES
     Dosage: 1200MG PER DAY
     Route: 048
     Dates: start: 20070920

REACTIONS (2)
  - Retinal pigmentation [Not Recovered/Not Resolved]
  - Nail pigmentation [Not Recovered/Not Resolved]
